FAERS Safety Report 23695383 (Version 1)
Quarter: 2024Q2

REPORT INFORMATION
  Report Type: Spontaneous
  Country: GB (occurrence: GB)
  Receive Date: 20240402
  Receipt Date: 20240402
  Transmission Date: 20240715
  Serious: Yes (Other)
  Sender: FDA-Public Use
  Company Number: GB-MHRA-MED-202403161416295340-CRMNJ

PATIENT
  Age: 45 Year
  Sex: Male
  Weight: 73 kg

DRUGS (2)
  1. TERBINAFINE [Suspect]
     Active Substance: TERBINAFINE
     Indication: Fungal foot infection
     Dosage: 250 MILLIGRAM, ONCE A DAY
     Route: 065
     Dates: start: 20230401
  2. TOLNAFTATE [Suspect]
     Active Substance: TOLNAFTATE
     Indication: Fungal foot infection
     Dosage: 250 MILLIGRAM, ONCE A DAY
     Route: 065
     Dates: start: 20230401

REACTIONS (4)
  - Depression [Not Recovered/Not Resolved]
  - Anxiety [Unknown]
  - Insomnia [Unknown]
  - Palpitations [Unknown]

NARRATIVE: CASE EVENT DATE: 20231001
